FAERS Safety Report 22604207 (Version 1)
Quarter: 2023Q2

REPORT INFORMATION
  Report Type: Spontaneous
  Country: US (occurrence: US)
  Receive Date: 20230615
  Receipt Date: 20230615
  Transmission Date: 20230721
  Serious: No
  Sender: FDA-Public Use
  Company Number: US-CPL-002897

PATIENT
  Sex: Male

DRUGS (1)
  1. NATEGLINIDE [Suspect]
     Active Substance: NATEGLINIDE
     Indication: Product used for unknown indication

REACTIONS (4)
  - Abdominal discomfort [Unknown]
  - Diarrhoea [Unknown]
  - Vomiting [Unknown]
  - Nausea [Unknown]
